FAERS Safety Report 14084796 (Version 1)
Quarter: 2017Q4

REPORT INFORMATION
  Report Type: Spontaneous
  Country: IT (occurrence: IT)
  Receive Date: 20171013
  Receipt Date: 20171013
  Transmission Date: 20180321
  Serious: Yes (Hospitalization, Other)
  Sender: FDA-Public Use
  Company Number: IT-BRISTOL-MYERS SQUIBB COMPANY-BMS-2017-090196

PATIENT
  Age: 83 Year
  Sex: Female

DRUGS (1)
  1. APIXABAN [Suspect]
     Active Substance: APIXABAN
     Indication: CEREBROVASCULAR ACCIDENT PROPHYLAXIS
     Dosage: 25 MG, DAILY
     Route: 048

REACTIONS (5)
  - Haemorrhoids [Unknown]
  - Prescribed overdose [Unknown]
  - Rectal polyp [Unknown]
  - Rectal haemorrhage [Unknown]
  - Diverticulum [Unknown]

NARRATIVE: CASE EVENT DATE: 20150826
